FAERS Safety Report 24791565 (Version 2)
Quarter: 2025Q1

REPORT INFORMATION
  Report Type: Spontaneous
  Country: JP (occurrence: JP)
  Receive Date: 20241231
  Receipt Date: 20250103
  Transmission Date: 20250409
  Serious: Yes (Death, Other)
  Sender: AMGEN
  Company Number: JP-KISSEI-TV20240991_P_1

PATIENT
  Age: 84 Year
  Sex: Male

DRUGS (6)
  1. TAVNEOS [Suspect]
     Active Substance: AVACOPAN
     Indication: Anti-neutrophil cytoplasmic antibody positive vasculitis
     Dosage: 60 MG, PER DAY
     Route: 048
     Dates: start: 202308, end: 20241029
  2. PREDNISOLONE [Concomitant]
     Active Substance: PREDNISOLONE
     Indication: Anti-neutrophil cytoplasmic antibody positive vasculitis
     Route: 065
     Dates: end: 20241029
  3. DAPRODUSTAT [Concomitant]
     Active Substance: DAPRODUSTAT
     Route: 048
  4. ERYTHROCIN [Concomitant]
     Active Substance: ERYTHROMYCIN LACTOBIONATE
     Route: 065
  5. SULFAMETHOXAZOLE\TRIMETHOPRIM [Concomitant]
     Active Substance: SULFAMETHOXAZOLE\TRIMETHOPRIM
     Route: 048
  6. DOTINURAD [Concomitant]
     Active Substance: DOTINURAD
     Route: 048

REACTIONS (1)
  - Atypical mycobacterial pneumonia [Fatal]

NARRATIVE: CASE EVENT DATE: 20240101
